FAERS Safety Report 13576893 (Version 1)
Quarter: 2017Q2

REPORT INFORMATION
  Report Type: Not Available
  Country: CH (occurrence: CH)
  Receive Date: 20170524
  Receipt Date: 20170524
  Transmission Date: 20170830
  Serious: Yes (Other)
  Sender: FDA-Public Use
  Company Number: CH--2017-CH-000002

PATIENT
  Age: 61 Year
  Sex: Female

DRUGS (2)
  1. AMOXICILLIN. [Suspect]
     Active Substance: AMOXICILLIN
     Indication: PERIODONTAL DISEASE
     Dosage: 375 MG THREE TIMES DAILY
  2. METRONIDAZOLE BRAND UNSPECIFIED (VIVIMED) [Suspect]
     Active Substance: METRONIDAZOLE
     Indication: PERIODONTAL DISEASE
     Dosage: 500 MG THREE TIMES DAILY

REACTIONS (1)
  - Pancreatitis acute [Recovered/Resolved]
